FAERS Safety Report 9495939 (Version 3)
Quarter: 2013Q4

REPORT INFORMATION
  Report Type: Spontaneous
  Country: US (occurrence: US)
  Receive Date: 20130904
  Receipt Date: 20131024
  Transmission Date: 20140711
  Serious: Yes (Death, Hospitalization, Other)
  Sender: FDA-Public Use
  Company Number: US-AMGEN-USASP2013061347

PATIENT
  Age: 60 Year
  Sex: Male

DRUGS (20)
  1. EPOGEN [Suspect]
     Indication: RENAL FAILURE CHRONIC
     Dosage: 20000 UNIT, QWK
     Route: 065
  2. NIASPAN [Concomitant]
     Dosage: 500 MG, BID
     Route: 048
  3. SODIUM BICARBONATE [Concomitant]
     Dosage: 160 MG, TID
     Route: 048
  4. LOPRESSOR [Concomitant]
     Dosage: 100 MG, BID
     Route: 048
  5. LASIX                              /00032601/ [Concomitant]
     Dosage: 40 MG, BID
     Route: 048
  6. PLAVIX [Concomitant]
     Dosage: 75 MG, QD
     Route: 048
  7. FOLIC ACID [Concomitant]
     Dosage: 1 MG, QD
     Route: 048
  8. AMLODIPINE [Concomitant]
     Dosage: 10 MG, QD
     Route: 048
  9. SIMVASTATIN [Concomitant]
     Dosage: 40 MG, QD
     Route: 048
  10. ADVAIR [Concomitant]
     Dosage: 250/50 MG BID
  11. SPIRIVA [Concomitant]
     Dosage: UNK UNK, QD
  12. HUMULIN [Concomitant]
     Dosage: 70/30
  13. ASPIRIN [Concomitant]
     Dosage: 81 MG, QD
     Route: 048
  14. MULTIVITAMINS, PLAIN [Concomitant]
     Dosage: UNK UNK, QD
     Route: 048
  15. OMEPRAZOLE [Concomitant]
     Dosage: 40 MG, UNK
  16. IMDUR [Concomitant]
     Dosage: 30 MG, UNK
  17. VENTOLIN                           /00139501/ [Concomitant]
     Dosage: UNK UNK, AS NECESSARY
  18. VITAMIN D                          /00107901/ [Concomitant]
  19. VITAMIN C                          /00008001/ [Concomitant]
  20. NITROSTAT [Concomitant]

REACTIONS (9)
  - Death [Fatal]
  - Iron deficiency anaemia [Unknown]
  - Appendicitis perforated [Recovered/Resolved]
  - Post procedural haemorrhage [Unknown]
  - Myocardial infarction [Unknown]
  - Fatigue [Unknown]
  - Dyspnoea exertional [Unknown]
  - Oedema peripheral [Recovered/Resolved]
  - Drug ineffective [Unknown]
